FAERS Safety Report 19842188 (Version 1)
Quarter: 2021Q3

REPORT INFORMATION
  Report Type: Spontaneous
  Country: NL (occurrence: NL)
  Receive Date: 20210916
  Receipt Date: 20210916
  Transmission Date: 20211014
  Serious: Yes (Other)
  Sender: FDA-Public Use
  Company Number: NL-MYLANLABS-2021M1062291

PATIENT
  Age: 58 Year
  Sex: Male

DRUGS (5)
  1. PREDNISONE. [Suspect]
     Active Substance: PREDNISONE
     Indication: MYASTHENIA GRAVIS
     Dosage: UNK (TAPER)
  2. CISPLATIN. [Concomitant]
     Active Substance: CISPLATIN
     Indication: THYMOMA
     Dosage: UNK
  3. PYRIDOSTIGMINE [Concomitant]
     Active Substance: PYRIDOSTIGMINE
     Indication: MYASTHENIA GRAVIS
     Dosage: UNK
  4. PREDNISONE. [Suspect]
     Active Substance: PREDNISONE
     Dosage: UNK
  5. ETOPOSIDE. [Concomitant]
     Active Substance: ETOPOSIDE
     Indication: THYMOMA
     Dosage: UNK

REACTIONS (4)
  - Bulbar palsy [Unknown]
  - Dyspnoea [Unknown]
  - Extraocular muscle paresis [Unknown]
  - Rebound effect [Unknown]
